FAERS Safety Report 4428140-1 (Version None)
Quarter: 2004Q3

REPORT INFORMATION
  Report Type: 
  Country: None (occurrence: None)
  Receive Date: 20040726
  Receipt Date: 20040518
  Transmission Date: 20050211
  Serious: No
  Sender: FDA-Public Use
  Company Number: USA031049262

PATIENT
  Age: 64 Year
  Sex: Female

DRUGS (1)
  1. FORTEO [Suspect]
     Indication: OSTEOPOROSIS
     Dosage: 20 UG/DAY
     Dates: start: 20030801

REACTIONS (5)
  - DIZZINESS [None]
  - HEADACHE [None]
  - MUSCLE CRAMP [None]
  - MUSCLE SPASMS [None]
  - NAUSEA [None]
